FAERS Safety Report 10651702 (Version 1)
Quarter: 2014Q4

REPORT INFORMATION
  Report Type: Spontaneous
  Country: CZ (occurrence: CZ)
  Receive Date: 20141215
  Receipt Date: 20141215
  Transmission Date: 20150529
  Serious: Yes (Hospitalization, Other)
  Sender: FDA-Public Use
  Company Number: CZ-MYLANLABS-2014M1013694

PATIENT

DRUGS (4)
  1. CYCLOPHOSPHAMIDE. [Suspect]
     Active Substance: CYCLOPHOSPHAMIDE
     Indication: ERDHEIM-CHESTER DISEASE
     Dosage: 150 MG/M2, DAY 1-5, CYCLES REPEATED IN MONTHLY INTERVALS
     Route: 042
     Dates: start: 20091013, end: 201006
  2. LITAK [Suspect]
     Active Substance: CLADRIBINE
     Indication: ERDHEIM-CHESTER DISEASE
     Dosage: 5 MG/M2, DAY 1-5, CYCLES REPEATED IN MONTHLY INTERVALS
     Route: 058
     Dates: start: 20091013, end: 201006
  3. BONEFOS [Concomitant]
     Active Substance: CLODRONATE DISODIUM
     Route: 065
  4. DEXAMETHASONE. [Suspect]
     Active Substance: DEXAMETHASONE
     Indication: ERDHEIM-CHESTER DISEASE
     Dosage: 24 MG, DAY 1-5, CYCLES REPEATED IN MONTHLY INTERVALS
     Route: 042
     Dates: start: 20091013, end: 201006

REACTIONS (6)
  - Immunodeficiency [Unknown]
  - Bone marrow failure [Not Recovered/Not Resolved]
  - Thrombocytopenia [Not Recovered/Not Resolved]
  - Neutropenia [Not Recovered/Not Resolved]
  - Herpes zoster [Unknown]
  - Lymphocyte count decreased [Not Recovered/Not Resolved]
